FAERS Safety Report 9675986 (Version 1)
Quarter: 2013Q4

REPORT INFORMATION
  Report Type: Spontaneous
  Country: ES (occurrence: ES)
  Receive Date: 20131107
  Receipt Date: 20131107
  Transmission Date: 20140711
  Serious: Yes (Hospitalization, Other)
  Sender: FDA-Public Use
  Company Number: ES-WATSON-2013-19759

PATIENT
  Age: 71 Year
  Sex: Female

DRUGS (4)
  1. CALCIUM CARBONATE [Suspect]
     Indication: HYPOPARATHYROIDISM SECONDARY
     Dosage: 900 MG, DAILY
     Route: 048
  2. CALCITRIOL [Suspect]
     Indication: HYPOPARATHYROIDISM SECONDARY
     Dosage: 1 ?G, DAILY
     Route: 048
  3. LISINOPRIL-HYDROCHLOROTHIAZIDE [Suspect]
     Indication: HYPERTENSION
     Dosage: 20/12.5 MG, DAILY
     Route: 065
  4. LEVOTHYROXINE [Concomitant]
     Indication: POST PROCEDURAL HYPOTHYROIDISM
     Dosage: UNK
     Route: 065

REACTIONS (2)
  - Milk-alkali syndrome [Recovering/Resolving]
  - Potentiating drug interaction [Recovering/Resolving]
